FAERS Safety Report 6346474-0 (Version None)
Quarter: 2009Q3

REPORT INFORMATION
  Report Type: 
  Country: None (occurrence: None)
  Receive Date: 20090901
  Receipt Date: 20090223
  Transmission Date: 20100115
  Serious: Yes (Hospitalization)
  Sender: FDA-Public Use
  Company Number: 2009BI006081

PATIENT
  Age: 35 Year
  Sex: Female
  Weight: 90.7194 kg

DRUGS (3)
  1. TYSABRI [Suspect]
     Indication: MULTIPLE SCLEROSIS
     Dosage: 300 MG;QM;IV
     Route: 042
     Dates: start: 20061201
  2. SLEEPING PILLS (NOS) [Concomitant]
  3. TRAMADOL HCL [Concomitant]

REACTIONS (5)
  - EATING DISORDER [None]
  - MULTIPLE SCLEROSIS RELAPSE [None]
  - TOOTH DISORDER [None]
  - TOOTH EROSION [None]
  - TOOTH FRACTURE [None]
